FAERS Safety Report 4351201-2 (Version None)
Quarter: 2004Q2

REPORT INFORMATION
  Report Type: 
  Country: None (occurrence: None)
  Receive Date: 20040428
  Receipt Date: 20030617
  Transmission Date: 20050107
  Serious: Yes (Other)
  Sender: FDA-Public Use
  Company Number: NSADSS2003024710

PATIENT
  Age: 36 Year
  Sex: Male
  Weight: 108.4097 kg

DRUGS (2)
  1. ULTRAM [Suspect]
     Indication: ORCHITIS
     Dosage: 8 TABLETS DAILY
     Dates: start: 20000216
  2. ACE INHIBITO (ACE INHIBITOR NOS) [Concomitant]

REACTIONS (1)
  - CONVULSION [None]
